FAERS Safety Report 5937412-0 (Version None)
Quarter: 2008Q4

REPORT INFORMATION
  Report Type: 
  Country: None (occurrence: None)
  Receive Date: 20081021
  Receipt Date: 20080320
  Transmission Date: 20090506
  Serious: Yes (Other)
  Sender: FDA-Public Use
  Company Number: HQWYE096118JUL06

PATIENT
  Age: 79 Year
  Sex: Female

DRUGS (1)
  1. PREMARIN [Suspect]
     Dosage: 132 MOS. (11 YEARS)
     Dates: start: 19930101, end: 20041001

REACTIONS (1)
  - BREAST CANCER [None]
